FAERS Safety Report 8798927 (Version 1)
Quarter: 2012Q4

REPORT INFORMATION
  Report Type: 
  Country: US (occurrence: US)
  Receive Date: 20120920
  Receipt Date: 20120920
  Transmission Date: 20130627
  Serious: Yes (Other)
  Sender: FDA-Public Use
  Company Number: CHPA2012US019658

PATIENT
  Age: 76 Year
  Sex: Male

DRUGS (4)
  1. EXCEDRIN EXTRA STRENGTH [Suspect]
     Indication: HEADACHE
     Dosage: 1 DF, Unk
     Route: 048
     Dates: start: 20120904, end: 20120904
  2. EXCEDRIN EXTRA STRENGTH [Suspect]
     Dosage: 2 DF, PRN
     Route: 048
     Dates: start: 1987
  3. EXCEDRIN UNKNOWN [Suspect]
     Dosage: 4 or 5 PILLS, PRN
     Dates: start: 1982
  4. DRUG THERAPY NOS [Suspect]
     Dosage: Unk, Unk

REACTIONS (2)
  - Dysstasia [Recovered/Resolved]
  - Skin disorder [Recovered/Resolved]
